FAERS Safety Report 10803415 (Version 1)
Quarter: 2015Q1

REPORT INFORMATION
  Report Type: Spontaneous
  Country: US (occurrence: US)
  Receive Date: 20150217
  Receipt Date: 20150217
  Transmission Date: 20150721
  Serious: No
  Sender: FDA-Public Use
  Company Number: US-RECKITT BENCKISER PHARMACEUTICAL, INC-RB-69045-2014

PATIENT

DRUGS (3)
  1. SUBOXONE [Suspect]
     Active Substance: BUPRENORPHINE HYDROCHLORIDE\NALOXONE HYDROCHLORIDE
     Indication: PAIN
     Dosage: 12-16 MG, DAILY
     Route: 064
     Dates: start: 2009, end: 2009
  2. SUBUTEX [Suspect]
     Active Substance: BUPRENORPHINE HYDROCHLORIDE
     Indication: PAIN
     Dosage: 16 MG, DAILY
     Route: 064
     Dates: start: 2009, end: 20091229
  3. NICOTINE. [Suspect]
     Active Substance: NICOTINE
     Indication: NICOTINE DEPENDENCE
     Dosage: 1-2 CIGARETTES DAILY
     Route: 064
     Dates: start: 2009, end: 20091229

REACTIONS (2)
  - Foetal exposure during pregnancy [Recovered/Resolved]
  - Macrosomia [Recovered/Resolved]

NARRATIVE: CASE EVENT DATE: 2009
